FAERS Safety Report 21376515 (Version 2)
Quarter: 2022Q4

REPORT INFORMATION
  Report Type: Spontaneous
  Country: US (occurrence: None)
  Receive Date: 20220926
  Receipt Date: 20221003
  Transmission Date: 20230112
  Serious: Yes (Hospitalization, Other)
  Sender: FDA-Public Use
  Company Number: US-VistaPharm, Inc.-VER202209-000789

PATIENT
  Age: 30 Year
  Sex: Male

DRUGS (2)
  1. ACETAMINOPHEN\HYDROCODONE [Suspect]
     Active Substance: ACETAMINOPHEN\HYDROCODONE
     Indication: Product used for unknown indication
     Dosage: 50 TABLETS OF 500 MG
     Route: 048
  2. METOCLOPRAMIDE [Concomitant]
     Active Substance: METOCLOPRAMIDE
     Indication: Product used for unknown indication
     Dosage: UNKNOWN (ONE DOSE)
     Route: 042

REACTIONS (5)
  - Methaemoglobinaemia [Unknown]
  - Acute kidney injury [Recovering/Resolving]
  - Sulphaemoglobinaemia [Unknown]
  - Liver injury [Recovered/Resolved]
  - Intentional overdose [Unknown]
